FAERS Safety Report 6368455-3 (Version None)
Quarter: 2009Q3

REPORT INFORMATION
  Report Type: 
  Country: None (occurrence: None)
  Receive Date: 20090916
  Receipt Date: 20090902
  Transmission Date: 20100115
  Serious: Yes (Hospitalization)
  Sender: FDA-Public Use
  Company Number: SPV1-2009-01772

PATIENT
  Age: 19 Year
  Sex: Male

DRUGS (2)
  1. ELAPRASE [Suspect]
     Indication: MUCOPOLYSACCHARIDOSIS II
     Dosage: IV DRIP
     Route: 041
     Dates: start: 20070111
  2. CIPRO [Concomitant]

REACTIONS (6)
  - FUNGAL INFECTION [None]
  - INFUSION RELATED REACTION [None]
  - OEDEMA [None]
  - PNEUMONIA [None]
  - STAPHYLOCOCCAL INFECTION [None]
  - VEIN DISORDER [None]
